FAERS Safety Report 6242968-7 (Version None)
Quarter: 2009Q2

REPORT INFORMATION
  Report Type: 
  Country: None (occurrence: None)
  Receive Date: 20090624
  Receipt Date: 20090615
  Transmission Date: 20091009
  Serious: Yes (Hospitalization, Other)
  Sender: FDA-Public Use
  Company Number: US-ELI_LILLY_AND_COMPANY-US200906003639

PATIENT
  Sex: Male
  Weight: 99.773 kg

DRUGS (15)
  1. BYETTA [Suspect]
     Indication: TYPE 2 DIABETES MELLITUS
     Dosage: 5 UG, 2/D
     Route: 058
     Dates: start: 20050401, end: 20050101
  2. BYETTA [Suspect]
     Dosage: 10 UG, 2/D
     Route: 058
     Dates: start: 20050101, end: 20070101
  3. BYETTA [Suspect]
     Dosage: 10 UG, 3/D
     Route: 058
     Dates: start: 20070101
  4. MONOPRIL [Concomitant]
     Indication: BLOOD PRESSURE INCREASED
     Route: 048
  5. BETA BLOCKING AGENTS [Concomitant]
     Indication: BLOOD PRESSURE INCREASED
     Route: 048
  6. METFORMIN [Concomitant]
     Indication: TYPE 2 DIABETES MELLITUS
     Dosage: 500 MG, 3/D
     Route: 048
  7. GLIPIZIDE [Concomitant]
     Indication: TYPE 2 DIABETES MELLITUS
     Dosage: 10 MG, 3/D
     Route: 048
  8. XANAX [Concomitant]
     Dosage: 1 MG, 4/D
     Route: 048
  9. CELEBREX [Concomitant]
     Indication: ARTHRITIS
  10. LOPRESSOR [Concomitant]
     Indication: BLOOD PRESSURE INCREASED
     Route: 048
  11. PREVACID [Concomitant]
     Dosage: 30 MG, DAILY (1/D)
     Route: 048
  12. AMBIEN [Concomitant]
     Indication: SLEEP DISORDER
     Dosage: 10 MG, AS NEEDED
     Route: 048
  13. CYMBALTA [Concomitant]
     Dates: end: 20050101
  14. OMEGA-3 FATTY ACIDS [Concomitant]
     Indication: BLOOD CHOLESTEROL INCREASED
  15. WELCHOL [Concomitant]

REACTIONS (24)
  - ABDOMINAL PAIN LOWER [None]
  - ARTHRALGIA [None]
  - ARTHRITIS [None]
  - BACK PAIN [None]
  - BLOOD GLUCOSE INCREASED [None]
  - BLOOD TESTOSTERONE DECREASED [None]
  - DIVERTICULITIS [None]
  - DYSKINESIA [None]
  - IMPAIRED GASTRIC EMPTYING [None]
  - LIGAMENT RUPTURE [None]
  - MENISCUS LESION [None]
  - MUSCLE SPASMS [None]
  - NEUROPATHY PERIPHERAL [None]
  - OEDEMA PERIPHERAL [None]
  - OVERDOSE [None]
  - PAIN IN EXTREMITY [None]
  - PARAESTHESIA [None]
  - POOR PERIPHERAL CIRCULATION [None]
  - SCIATICA [None]
  - SPINAL CLAUDICATION [None]
  - SURGERY [None]
  - THYROID FUNCTION TEST ABNORMAL [None]
  - TREMOR [None]
  - VENOUS INSUFFICIENCY [None]
